FAERS Safety Report 25780348 (Version 1)
Quarter: 2025Q3

REPORT INFORMATION
  Report Type: Spontaneous
  Country: US (occurrence: US)
  Receive Date: 20250909
  Receipt Date: 20250909
  Transmission Date: 20251020
  Serious: No
  Sender: SANOFI AVENTIS
  Company Number: US-SA-2025SA265685

PATIENT
  Sex: Male
  Weight: 78.18 kg

DRUGS (4)
  1. ALTUVIIIO [Suspect]
     Active Substance: EFANESOCTOCOG ALFA
     Indication: Factor VIII deficiency
     Dosage: 4,000 IU (+/-10%), QW AND AS NEEDED BLEEDS
     Route: 042
  2. ALTUVIIIO [Suspect]
     Active Substance: EFANESOCTOCOG ALFA
     Indication: Factor VIII deficiency
     Dosage: 4,000 IU (+/-10%), QW AND AS NEEDED BLEEDS
     Route: 042
  3. AMINOCAPROIC ACID [Concomitant]
     Active Substance: AMINOCAPROIC ACID
  4. CETIRIZINE HCL [Concomitant]
     Active Substance: CETIRIZINE HYDROCHLORIDE

REACTIONS (1)
  - Haemorrhage [Recovered/Resolved]
